FAERS Safety Report 6388901-9 (Version None)
Quarter: 2009Q4

REPORT INFORMATION
  Report Type: 
  Country: None (occurrence: None)
  Receive Date: 20091001
  Receipt Date: 20090917
  Transmission Date: 20100525
  Serious: Yes (Hospitalization)
  Sender: FDA-Public Use
  Company Number: 8052292

PATIENT
  Age: 58 Year
  Sex: Male
  Weight: 66 kg

DRUGS (3)
  1. KEPPRA [Suspect]
     Indication: EPILEPSY
     Dosage: 500 MG 2/D
     Dates: start: 20090202
  2. KALINOR-BRAUSETABLETTEN [Concomitant]
  3. MONO-EMBOLEX /01691801/ [Concomitant]

REACTIONS (2)
  - COGNITIVE DISORDER [None]
  - DISTURBANCE IN ATTENTION [None]
